FAERS Safety Report 11770724 (Version 2)
Quarter: 2015Q4

REPORT INFORMATION
  Report Type: Spontaneous
  Country: ES (occurrence: ES)
  Receive Date: 20151123
  Receipt Date: 20151204
  Transmission Date: 20160304
  Serious: Yes (Hospitalization, Other)
  Sender: FDA-Public Use
  Company Number: ES-ABBVIE-15P-144-1501731-00

PATIENT
  Age: 73 Year
  Sex: Female

DRUGS (4)
  1. QUETIAPINA [Concomitant]
     Active Substance: QUETIAPINE
     Indication: PARKINSON^S DISEASE
  2. DUODOPA [Suspect]
     Active Substance: CARBIDOPA\LEVODOPA
     Indication: PARKINSON^S DISEASE
     Dosage: ORNING DOSE: 10 ML; CONTINOUS DOSE: 3 ML/H, EXTRA DOSE: 1 ML
     Route: 050
     Dates: start: 20080625, end: 20151010
  3. SINEMET [Concomitant]
     Active Substance: CARBIDOPA\LEVODOPA
     Indication: PARKINSON^S DISEASE
  4. TRANKIMAZIN [Concomitant]
     Active Substance: ALPRAZOLAM
     Indication: PRODUCT USED FOR UNKNOWN INDICATION

REACTIONS (13)
  - Nausea [Recovering/Resolving]
  - Vomiting [Recovering/Resolving]
  - Enteritis [Recovering/Resolving]
  - Haematoma infection [Recovering/Resolving]
  - Abdominal pain [Recovered/Resolved]
  - Pubis fracture [Recovering/Resolving]
  - Medical device complication [Unknown]
  - Fall [Recovered/Resolved]
  - Device dislocation [Recovering/Resolving]
  - Device breakage [Recovering/Resolving]
  - Gastrointestinal disorder [Recovered/Resolved]
  - Parkinson^s disease [Recovered/Resolved]
  - Device kink [Recovering/Resolving]

NARRATIVE: CASE EVENT DATE: 20151101
